FAERS Safety Report 4698464-1 (Version None)
Quarter: 2005Q2

REPORT INFORMATION
  Report Type: 
  Country: None (occurrence: None)
  Receive Date: 20050621
  Receipt Date: 20050608
  Transmission Date: 20051028
  Serious: Yes (Hospitalization)
  Sender: FDA-Public Use
  Company Number: JP_050406284

PATIENT
  Age: 13 Year
  Sex: Female
  Weight: 21 kg

DRUGS (3)
  1. ZYPREXA [Suspect]
     Indication: ANOREXIA NERVOSA
     Dosage: 4 MG DAY
     Dates: start: 20050316, end: 20050330
  2. EVAMYL (LORMETAZEPAM) [Concomitant]
  3. TPN [Concomitant]

REACTIONS (2)
  - RED BLOOD CELL COUNT DECREASED [None]
  - WHITE BLOOD CELL COUNT DECREASED [None]
